FAERS Safety Report 11598137 (Version 2)
Quarter: 2016Q2

REPORT INFORMATION
  Report Type: Spontaneous
  Country: US (occurrence: US)
  Receive Date: 20151006
  Receipt Date: 20160405
  Transmission Date: 20160815
  Serious: No
  Sender: FDA-Public Use
  Company Number: US-ROCHE-1563651

PATIENT
  Sex: Male

DRUGS (1)
  1. ERIVEDGE [Suspect]
     Active Substance: VISMODEGIB
     Indication: BASAL CELL CARCINOMA
     Dosage: SAME DOSE ON 12/SEP/2014. RESTARTED ON AN UNPSECIFIED DATE.
     Route: 048
     Dates: start: 20140911, end: 20150609

REACTIONS (5)
  - Muscle spasms [Unknown]
  - Nausea [Unknown]
  - Alopecia [Unknown]
  - Insomnia [Unknown]
  - Ageusia [Unknown]
